FAERS Safety Report 5460349-0 (Version None)
Quarter: 2007Q3

REPORT INFORMATION
  Report Type: 
  Country: None (occurrence: None)
  Receive Date: 20070919
  Receipt Date: 20070625
  Transmission Date: 20080115
  Serious: No
  Sender: FDA-Public Use
  Company Number: US-ASTRAZENECA-2007UW15137

PATIENT
  Age: 91 Year
  Sex: Male
  Weight: 49.9 kg

DRUGS (3)
  1. SEROQUEL [Suspect]
     Indication: AGGRESSION
     Route: 048
  2. PRILOSEC [Concomitant]
  3. NITROGLYCERIN [Concomitant]

REACTIONS (4)
  - INSOMNIA [None]
  - MUSCLE TWITCHING [None]
  - ORAL INTAKE REDUCED [None]
  - WEIGHT DECREASED [None]
